FAERS Safety Report 4283195-2 (Version None)
Quarter: 2004Q1

REPORT INFORMATION
  Report Type: 
  Country: None (occurrence: None)
  Receive Date: 20040129
  Receipt Date: 20040119
  Transmission Date: 20041129
  Serious: Yes (Hospitalization)
  Sender: FDA-Public Use
  Company Number: 2003121235

PATIENT
  Age: 78 Year
  Sex: Male

DRUGS (5)
  1. TAHOR (ATORVASTATIN) [Suspect]
     Indication: ILL-DEFINED DISORDER
     Dosage: 20 MG (DAILY), ORAL
     Route: 048
     Dates: start: 20030101
  2. BISELECT (HYDROCHLOROTHIAZIDE, BISOPROLOL FUMARATE) [Concomitant]
  3. ACETYLSALICYLIC ACID SRT [Concomitant]
  4. ALFUZOSIN (ALFUZOSIN) [Concomitant]
  5. RAMIPRIL [Concomitant]

REACTIONS (4)
  - BLOOD CREATINE PHOSPHOKINASE INCREASED [None]
  - FATIGUE [None]
  - HEPATIC FAILURE [None]
  - TEMPORAL ARTERITIS [None]
